FAERS Safety Report 8227605-4 (Version None)
Quarter: 2012Q1

REPORT INFORMATION
  Report Type: 
  Country: None (occurrence: None)
  Receive Date: 20120322
  Receipt Date: 20120308
  Transmission Date: 20120608
  Serious: Yes (Hospitalization, Other)
  Sender: FDA-Public Use
  Company Number: JP-SANOFI-AVENTIS-2011SA084220

PATIENT
  Age: 27 Year
  Sex: Female
  Weight: 53.25 kg

DRUGS (8)
  1. DEPAS [Concomitant]
     Indication: AUTONOMIC NERVOUS SYSTEM IMBALANCE
     Dates: start: 20100101
  2. KAMIKIHITOU [Concomitant]
     Indication: AUTONOMIC NERVOUS SYSTEM IMBALANCE
     Dates: start: 20100101
  3. BLONANSERIN [Concomitant]
     Indication: AUTONOMIC NERVOUS SYSTEM IMBALANCE
     Dates: start: 20100101
  4. ZOLPIDEM [Suspect]
     Indication: AUTONOMIC NERVOUS SYSTEM IMBALANCE
     Route: 048
     Dates: start: 20080101, end: 20111217
  5. ROHYPNOL [Concomitant]
     Indication: AUTONOMIC NERVOUS SYSTEM IMBALANCE
     Dates: start: 20100101
  6. SEROQUEL [Suspect]
     Indication: SCHIZOPHRENIA
     Route: 048
     Dates: start: 20110101, end: 20111217
  7. SEROQUEL [Suspect]
     Indication: AUTONOMIC NERVOUS SYSTEM IMBALANCE
     Route: 048
     Dates: start: 20110101, end: 20111217
  8. LORAZEPAM [Concomitant]
     Indication: AUTONOMIC NERVOUS SYSTEM IMBALANCE
     Dates: start: 20100101

REACTIONS (3)
  - VOMITING [None]
  - MATERNAL EXPOSURE DURING PREGNANCY [None]
  - THREATENED LABOUR [None]
